FAERS Safety Report 7701359-X (Version None)
Quarter: 2011Q3

REPORT INFORMATION
  Report Type: 
  Country: None (occurrence: None)
  Receive Date: 20110822
  Receipt Date: 20110812
  Transmission Date: 20111222
  Serious: Yes (Hospitalization)
  Sender: FDA-Public Use
  Company Number: US-ASTRAZENECA-2011SE48822

PATIENT
  Age: 931 Month
  Sex: Female
  Weight: 69.5 kg

DRUGS (2)
  1. VANDETANIB [Suspect]
     Indication: MALIGNANT PERITONEAL NEOPLASM
     Route: 048
     Dates: start: 20110302, end: 20110728
  2. DOCETAXEL [Suspect]
     Indication: MALIGNANT PERITONEAL NEOPLASM
     Dosage: 75 MG/M2ON DAY 1 OF CYCLE
     Route: 042
     Dates: start: 20110302, end: 20110706

REACTIONS (4)
  - PNEUMONITIS [None]
  - DYSPNOEA [None]
  - RASH MACULO-PAPULAR [None]
  - HYPOXIA [None]
